FAERS Safety Report 18686444 (Version 1)
Quarter: 2020Q4

REPORT INFORMATION
  Report Type: Spontaneous
  Country: ID (occurrence: ID)
  Receive Date: 20201231
  Receipt Date: 20201231
  Transmission Date: 20210114
  Serious: Yes (Other)
  Sender: FDA-Public Use
  Company Number: ID-SUN PHARMACEUTICAL INDUSTRIES LTD-2020R1-273490

PATIENT
  Age: 63 Year
  Sex: Male

DRUGS (3)
  1. SODIUM CHLORITE [Suspect]
     Active Substance: SODIUM CHLORITE
     Indication: PAIN
     Dosage: UNK (10 ML)
     Route: 065
  2. BUPIVACAINE. [Suspect]
     Active Substance: BUPIVACAINE
     Indication: PAIN
     Dosage: UNK (8 ML OF 0.25%)
     Route: 065
  3. TRIAMCINOLONE [Suspect]
     Active Substance: TRIAMCINOLONE
     Indication: PAIN
     Dosage: UNK (40 MG)
     Route: 065

REACTIONS (1)
  - Cauda equina syndrome [Recovering/Resolving]
